FAERS Safety Report 19627761 (Version 1)
Quarter: 2021Q3

REPORT INFORMATION
  Report Type: Report from Study
  Country: PT (occurrence: PT)
  Receive Date: 20210728
  Receipt Date: 20210728
  Transmission Date: 20211014
  Serious: Yes (Other)
  Sender: FDA-Public Use
  Company Number: PT-ASTRAZENECA-2021A648920

PATIENT

DRUGS (1)
  1. OSIMERTINIB. [Suspect]
     Active Substance: OSIMERTINIB
     Indication: NON-SMALL CELL LUNG CANCER STAGE IV
     Route: 048

REACTIONS (3)
  - Malignant neoplasm progression [Unknown]
  - Anaplastic lymphoma kinase gene mutation [Unknown]
  - Drug resistance [Unknown]
